FAERS Safety Report 20995003 (Version 1)
Quarter: 2022Q2

REPORT INFORMATION
  Report Type: Spontaneous
  Country: CZ (occurrence: CZ)
  Receive Date: 20220622
  Receipt Date: 20220622
  Transmission Date: 20220721
  Serious: Yes (Hospitalization, Other)
  Sender: FDA-Public Use
  Company Number: CZ-ASTELLAS-2021US041886

PATIENT
  Age: 77 Year
  Sex: Male

DRUGS (14)
  1. SOLIFENACIN [Suspect]
     Active Substance: SOLIFENACIN
     Indication: Lower urinary tract symptoms
     Dosage: 10 MG, ONCE DAILY (1-0-0)
     Route: 048
     Dates: start: 201812
  2. BISOPROLOL [Concomitant]
     Active Substance: BISOPROLOL
     Indication: Product used for unknown indication
     Dosage: 5 MG, ONCE DAILY (1-0-0)
     Route: 065
  3. PERINDOPRIL [Concomitant]
     Active Substance: PERINDOPRIL
     Indication: Product used for unknown indication
     Dosage: 4 MG, ONCE DAILY (1-0-0)
     Route: 065
  4. SPIRONOLACTONE [Concomitant]
     Active Substance: SPIRONOLACTONE
     Indication: Product used for unknown indication
     Dosage: 25 MG, ONCE DAILY (1-0-0)
     Route: 065
  5. LERCANIDIPINE [Concomitant]
     Active Substance: LERCANIDIPINE
     Indication: Product used for unknown indication
     Dosage: 20 MG, ONCE DAILY (0-0-1)
     Route: 065
  6. OMEPRAZOLE [Concomitant]
     Active Substance: OMEPRAZOLE
     Indication: Product used for unknown indication
     Dosage: 20 MG, ONCE DAILY (1-0-0)
     Route: 065
  7. ATORVASTATIN [Concomitant]
     Active Substance: ATORVASTATIN
     Indication: Product used for unknown indication
     Dosage: 15 MG, ONCE DAILY (0-0-1)
     Route: 065
  8. ASPIRIN [Concomitant]
     Active Substance: ASPIRIN
     Indication: Product used for unknown indication
     Dosage: 100 MG, ONCE DAILY (1-0-0)
     Route: 065
  9. DARIFENACIN [Concomitant]
     Active Substance: DARIFENACIN
     Indication: Product used for unknown indication
     Dosage: 15 MG, ONCE DAILY (1-0-0)
     Route: 065
  10. DESMOPRESSIN [Concomitant]
     Active Substance: DESMOPRESSIN
     Indication: Product used for unknown indication
     Dosage: 60 ?G, ONCE DAILY (0-0-1)
     Route: 065
  11. DOXAZOSIN [Concomitant]
     Active Substance: DOXAZOSIN MESYLATE
     Indication: Product used for unknown indication
     Dosage: 4 MG, ONCE DAILY (0-0-1)
     Route: 065
  12. SODIUM CHLORIDE [Concomitant]
     Active Substance: SODIUM CHLORIDE
     Indication: Hyponatraemia
     Dosage: 1000 MG, TWICE DAILY (1-0-1) (INDIVIDUALY PREPARED CAPSULES)
     Route: 065
  13. LEVETIRACETAM [Concomitant]
     Active Substance: LEVETIRACETAM
     Indication: Product used for unknown indication
     Dosage: 500 MG, TWICE DAILY (1-0-1)
     Route: 065
  14. GABAPENTIN [Concomitant]
     Active Substance: GABAPENTIN
     Indication: Product used for unknown indication
     Dosage: 100 MG, THRICE DAILY (1-1-1) (NEWLY ABOUT 14 DAYS)
     Route: 065

REACTIONS (6)
  - Dysuria [Unknown]
  - Urinary retention [Unknown]
  - Urinary tract infection [Unknown]
  - Cognitive disorder [Recovered/Resolved]
  - Overdose [Unknown]
  - Intentional product misuse [Unknown]

NARRATIVE: CASE EVENT DATE: 20200101
